FAERS Safety Report 20990724 (Version 1)
Quarter: 2022Q2

REPORT INFORMATION
  Report Type: Spontaneous
  Country: US (occurrence: US)
  Receive Date: 20220622
  Receipt Date: 20220622
  Transmission Date: 20220720
  Serious: No
  Sender: FDA-Public Use
  Company Number: US-Accord-260476

PATIENT
  Age: 54 Year
  Sex: Female

DRUGS (1)
  1. AMLODIPINE BESYLATE [Suspect]
     Active Substance: AMLODIPINE BESYLATE
     Indication: Product used for unknown indication

REACTIONS (9)
  - Feeling jittery [Unknown]
  - Respiratory tract congestion [Unknown]
  - Bronchitis [Unknown]
  - Oropharyngeal pain [Unknown]
  - Dehydration [Unknown]
  - Blood glucose decreased [Unknown]
  - Decreased appetite [Unknown]
  - Dizziness [Unknown]
  - Blood pressure decreased [Unknown]
